FAERS Safety Report 4858530-4 (Version None)
Quarter: 2005Q4

REPORT INFORMATION
  Report Type: 
  Country: None (occurrence: None)
  Receive Date: 20051219
  Receipt Date: 20051207
  Transmission Date: 20060501
  Serious: Yes (Life-Threatening, Hospitalization, Other)
  Sender: FDA-Public Use
  Company Number: GB-JNJFOC-20051203317

PATIENT
  Sex: Female
  Weight: 54 kg

DRUGS (6)
  1. REMICADE [Suspect]
     Indication: RHEUMATOID ARTHRITIS
     Route: 042
  2. PREDNISOLONE [Concomitant]
     Route: 065
  3. ATENOLOL [Concomitant]
     Route: 065
  4. BENDROFLUAZIDE [Concomitant]
     Route: 065
  5. HRT [Concomitant]
     Route: 065
  6. NAPROXEN [Concomitant]
     Route: 065

REACTIONS (3)
  - COMPARTMENT SYNDROME [None]
  - DRUG HYPERSENSITIVITY [None]
  - SYNOVITIS [None]
